FAERS Safety Report 10572763 (Version 1)
Quarter: 2014Q4

REPORT INFORMATION
  Report Type: Spontaneous
  Country: FR (occurrence: None)
  Receive Date: 20141106
  Receipt Date: 20141106
  Transmission Date: 20150529
  Serious: Yes (Congenital Anomaly)
  Sender: FDA-Public Use
  Company Number: IMP_08030_2014

PATIENT
  Sex: Female

DRUGS (1)
  1. DIVALPROEX SODIUM. [Suspect]
     Active Substance: DIVALPROEX SODIUM
     Indication: MATERNAL EXPOSURE DURING PREGNANCY
     Dosage: PER DAY
     Route: 064

REACTIONS (10)
  - Learning disability [None]
  - Mental retardation [None]
  - Foetal anticonvulsant syndrome [None]
  - Maternal drugs affecting foetus [None]
  - Atrial septal defect [None]
  - Talipes [None]
  - Limb malformation [None]
  - Febrile convulsion [None]
  - Aggression [None]
  - Epilepsy [None]
